FAERS Safety Report 19497440 (Version 2)
Quarter: 2021Q3

REPORT INFORMATION
  Report Type: Report from Study
  Country: NL (occurrence: NL)
  Receive Date: 20210706
  Receipt Date: 20210809
  Transmission Date: 20211014
  Serious: Yes (Hospitalization)
  Sender: FDA-Public Use
  Company Number: NL-EISAI MEDICAL RESEARCH-EC-2021-095482

PATIENT
  Age: 71 Year
  Sex: Male

DRUGS (2)
  1. PEMBROLIZUMAB. [Suspect]
     Active Substance: PEMBROLIZUMAB
     Indication: PERITONEAL MESOTHELIOMA MALIGNANT
     Route: 041
     Dates: start: 20210315, end: 20210607
  2. LENVATINIB [Suspect]
     Active Substance: LENVATINIB
     Indication: PERITONEAL MESOTHELIOMA MALIGNANT
     Route: 048
     Dates: start: 20210315, end: 20210621

REACTIONS (1)
  - Dehydration [Unknown]

NARRATIVE: CASE EVENT DATE: 20210628
